FAERS Safety Report 9298903 (Version 1)
Quarter: 2013Q2

REPORT INFORMATION
  Report Type: Spontaneous
  Country: US (occurrence: US)
  Receive Date: 20130520
  Receipt Date: 20130520
  Transmission Date: 20140414
  Serious: No
  Sender: FDA-Public Use
  Company Number: US-SANOFI-AVENTIS-2012SA054411

PATIENT
  Age: 44 Year
  Sex: Male

DRUGS (1)
  1. APIDRA [Suspect]
     Dosage: DOSE:4 UNIT(S)
     Route: 058

REACTIONS (3)
  - Skin swelling [Recovered/Resolved]
  - Pruritus [Recovered/Resolved]
  - Burning sensation [Recovered/Resolved]
